FAERS Safety Report 13601049 (Version 1)
Quarter: 2017Q2

REPORT INFORMATION
  Report Type: Spontaneous
  Country: US (occurrence: US)
  Receive Date: 20170601
  Receipt Date: 20170601
  Transmission Date: 20170830
  Serious: No
  Sender: FDA-Public Use
  Company Number: US-BAXALTA-2017BLT005148

PATIENT
  Sex: Female

DRUGS (4)
  1. CUVITRU [Suspect]
     Active Substance: HUMAN IMMUNOGLOBULIN G
     Indication: PRODUCT USED FOR UNKNOWN INDICATION
     Dosage: 85 MG, 4TH INFUSION, (INFUSED OVER 4 HOURS)
     Route: 042
     Dates: start: 20170522, end: 20170522
  2. CUVITRU [Suspect]
     Active Substance: HUMAN IMMUNOGLOBULIN G
     Dosage: 85 MG, (INFUSED OVER 4 HOURS)
     Route: 042
     Dates: start: 201705, end: 201705
  3. CUVITRU [Suspect]
     Active Substance: HUMAN IMMUNOGLOBULIN G
     Dosage: 85 MG, 1ST INFUSION, (INFUSED OVER 4 HOURS)
     Route: 042
     Dates: start: 201704, end: 201704
  4. CUVITRU [Suspect]
     Active Substance: HUMAN IMMUNOGLOBULIN G
     Dosage: 85 MG, (INFUSED OVER 4 HOURS)
     Route: 042
     Dates: start: 201704, end: 201704

REACTIONS (8)
  - Pyrexia [Recovering/Resolving]
  - Photophobia [Recovering/Resolving]
  - Diarrhoea [Recovering/Resolving]
  - Pain in extremity [Recovering/Resolving]
  - Muscle spasms [Recovering/Resolving]
  - Headache [Recovering/Resolving]
  - Hypophagia [Recovering/Resolving]
  - Nausea [Recovering/Resolving]
